APPROVED DRUG PRODUCT: CEFPODOXIME PROXETIL
Active Ingredient: CEFPODOXIME PROXETIL
Strength: EQ 100MG BASE/5ML
Dosage Form/Route: FOR SUSPENSION;ORAL
Application: A065409 | Product #002
Applicant: AUROBINDO PHARMA LTD
Approved: Jun 8, 2007 | RLD: No | RS: Yes | Type: RX